FAERS Safety Report 4864326-X (Version None)
Quarter: 2005Q4

REPORT INFORMATION
  Report Type: 
  Country: None (occurrence: None)
  Receive Date: 20051222
  Receipt Date: 20050825
  Transmission Date: 20060501
  Serious: Yes (Death, Hospitalization, Other)
  Sender: FDA-Public Use
  Company Number: US-MERCK-0508USA04281

PATIENT
  Age: 78 Year
  Sex: Male

DRUGS (1)
  1. VIOXX [Suspect]
     Route: 048
     Dates: end: 20021120

REACTIONS (14)
  - ACUTE RESPIRATORY FAILURE [None]
  - CEREBRAL ARTERY OCCLUSION [None]
  - CEREBROVASCULAR ACCIDENT [None]
  - CONVULSION [None]
  - DIABETES MELLITUS NON-INSULIN-DEPENDENT [None]
  - GOUT [None]
  - HYPERTENSION [None]
  - INJURY [None]
  - PNEUMONIA [None]
  - RENAL FAILURE CHRONIC [None]
  - SEPSIS [None]
  - STAPHYLOCOCCAL BACTERAEMIA [None]
  - ULCER [None]
  - VARICES OESOPHAGEAL [None]
